FAERS Safety Report 12597668 (Version 2)
Quarter: 2016Q3

REPORT INFORMATION
  Report Type: Spontaneous
  Country: JP (occurrence: JP)
  Receive Date: 20160726
  Receipt Date: 20160803
  Transmission Date: 20161109
  Serious: Yes (Other)
  Sender: FDA-Public Use
  Company Number: PHHY2016JP100582

PATIENT
  Age: 61 Year
  Sex: Female

DRUGS (15)
  1. IRINOTECAN [Suspect]
     Active Substance: IRINOTECAN
     Indication: METASTASES TO LIVER
     Route: 065
  2. IRINOTECAN [Suspect]
     Active Substance: IRINOTECAN
     Indication: METASTASES TO LUNG
  3. 5 FLUORO URACIL [Suspect]
     Active Substance: FLUOROURACIL
     Indication: COLON CANCER
  4. BEVACIZUMAB [Suspect]
     Active Substance: BEVACIZUMAB
     Indication: METASTASES TO LIVER
     Route: 065
  5. FOLINIC ACID [Suspect]
     Active Substance: LEUCOVORIN
     Indication: METASTASES TO LIVER
     Route: 065
  6. FOLINIC ACID [Suspect]
     Active Substance: LEUCOVORIN
     Indication: COLON CANCER
  7. 5 FLUORO URACIL [Suspect]
     Active Substance: FLUOROURACIL
     Indication: METASTASES TO LUNG
  8. BEVACIZUMAB [Suspect]
     Active Substance: BEVACIZUMAB
     Indication: COLON CANCER
  9. IRINOTECAN [Suspect]
     Active Substance: IRINOTECAN
     Indication: COLON CANCER
  10. FOLINIC ACID [Suspect]
     Active Substance: LEUCOVORIN
     Indication: METASTASES TO LUNG
  11. 5 FLUORO URACIL [Suspect]
     Active Substance: FLUOROURACIL
     Indication: METASTASES TO LIVER
     Dosage: 1000 MG/M2, UNK
     Route: 065
  12. BEVACIZUMAB [Suspect]
     Active Substance: BEVACIZUMAB
     Indication: METASTASES TO LUNG
  13. CETUXIMAB [Suspect]
     Active Substance: CETUXIMAB
     Indication: METASTASES TO LIVER
  14. CETUXIMAB [Suspect]
     Active Substance: CETUXIMAB
     Indication: COLON CANCER
  15. CETUXIMAB [Suspect]
     Active Substance: CETUXIMAB
     Indication: METASTASES TO LUNG
     Dosage: 250 MG/M2, QD
     Route: 065

REACTIONS (5)
  - Cholangitis [Recovered/Resolved]
  - Metastases to liver [Unknown]
  - Disease progression [Unknown]
  - Drug ineffective [Unknown]
  - Anaemia [Recovered/Resolved]
